FAERS Safety Report 9117387 (Version 2)
Quarter: 2013Q2

REPORT INFORMATION
  Report Type: Report from Study
  Country: JP (occurrence: JP)
  Receive Date: 20130225
  Receipt Date: 20130417
  Transmission Date: 20140414
  Serious: Yes (Other)
  Sender: FDA-Public Use
  Company Number: JP-JNJFOC-20130210456

PATIENT
  Age: 51 Year
  Sex: Female
  Weight: 50 kg

DRUGS (8)
  1. SIMPONI [Suspect]
     Indication: RHEUMATOID ARTHRITIS
     Route: 058
     Dates: start: 20120515
  2. RHEUMATREX [Suspect]
     Indication: RHEUMATOID ARTHRITIS
     Dates: end: 20120604
  3. TACROLIMUS [Concomitant]
     Indication: RHEUMATOID ARTHRITIS
  4. LOXONIN [Concomitant]
     Indication: RHEUMATOID ARTHRITIS
  5. DIOVAN [Concomitant]
     Indication: HYPERTENSION
     Route: 048
  6. PARIET [Concomitant]
     Indication: GASTROOESOPHAGEAL REFLUX DISEASE
     Route: 048
  7. BAKTAR [Concomitant]
     Indication: PROPHYLAXIS
     Route: 048
  8. ACTONEL [Concomitant]
     Indication: PROPHYLAXIS
     Route: 048

REACTIONS (1)
  - Hepatic function abnormal [Recovered/Resolved]
